FAERS Safety Report 7171549-6 (Version None)
Quarter: 2010Q4

REPORT INFORMATION
  Report Type: 
  Country: None (occurrence: None)
  Receive Date: 20101217
  Receipt Date: 20101213
  Transmission Date: 20110411
  Serious: Yes (Hospitalization, Other)
  Sender: FDA-Public Use
  Company Number: PL-PFIZER INC-2010170054

PATIENT
  Age: 23 Year
  Sex: Male
  Weight: 136 kg

DRUGS (4)
  1. ZELDOX [Suspect]
     Dosage: 80 MG, 2X/DAY
     Route: 048
     Dates: start: 20100223, end: 20100927
  2. ZYPREXA [Suspect]
     Dosage: 5 MG, 2X/DAY
     Route: 048
  3. OLZAPIN [Suspect]
     Dosage: 5 MG, 21 TABLETS
  4. ZOLAFREN [Suspect]
     Dosage: 10 MG, 30 TABLETS

REACTIONS (4)
  - DEPRESSED MOOD [None]
  - HALLUCINATION, AUDITORY [None]
  - OVERDOSE [None]
  - SUICIDE ATTEMPT [None]
